FAERS Safety Report 23843989 (Version 3)
Quarter: 2025Q3

REPORT INFORMATION
  Report Type: Spontaneous
  Country: US (occurrence: US)
  Receive Date: 20240510
  Receipt Date: 20250828
  Transmission Date: 20251021
  Serious: No
  Sender: SANOFI AVENTIS
  Company Number: US-SA-SAC20240506000864

PATIENT
  Age: 48 Year
  Sex: Female

DRUGS (22)
  1. DUPIXENT [Suspect]
     Active Substance: DUPILUMAB
     Indication: Asthma
     Dosage: 300 MG, QOW
     Route: 058
     Dates: start: 20230727
  2. ALBUTEROL SULFATE [Concomitant]
     Active Substance: ALBUTEROL SULFATE
  3. AMLODIPINE [Concomitant]
     Active Substance: AMLODIPINE BESYLATE
  4. ATORVASTATIN [Concomitant]
     Active Substance: ATORVASTATIN
  5. FLUTICASONE [Concomitant]
     Active Substance: FLUTICASONE
  6. FOLIC ACID [Concomitant]
     Active Substance: FOLIC ACID
  7. GLIMEPIRIDE [Concomitant]
     Active Substance: GLIMEPIRIDE
  8. IBUPROFEN [Concomitant]
     Active Substance: IBUPROFEN
  9. JARDIANCE [Concomitant]
     Active Substance: EMPAGLIFLOZIN
  10. HYDROCHLOROTHIAZIDE\LOSARTAN [Concomitant]
     Active Substance: HYDROCHLOROTHIAZIDE\LOSARTAN
  11. MELOXICAM [Concomitant]
     Active Substance: MELOXICAM
  12. METFORMIN [Concomitant]
     Active Substance: METFORMIN HYDROCHLORIDE
  13. MONTELUKAST [Concomitant]
     Active Substance: MONTELUKAST
  14. NOVOLOG [Concomitant]
     Active Substance: INSULIN ASPART
  15. OMEPRAZOLE [Concomitant]
     Active Substance: OMEPRAZOLE
  16. AMLODIPINE [Concomitant]
     Active Substance: AMLODIPINE BESYLATE
  17. HYDROCORTISONE [Concomitant]
     Active Substance: HYDROCORTISONE
  18. KENALOG [Concomitant]
     Active Substance: TRIAMCINOLONE ACETONIDE
  19. BASAGLAR [Concomitant]
     Active Substance: INSULIN GLARGINE
  20. GABAPENTIN [Concomitant]
     Active Substance: GABAPENTIN
  21. FAMOTIDINE [Concomitant]
     Active Substance: FAMOTIDINE
  22. ACETAZOLAMIDE [Concomitant]
     Active Substance: ACETAZOLAMIDE

REACTIONS (5)
  - Sleep disorder due to a general medical condition [Unknown]
  - Impaired quality of life [Unknown]
  - Asthma [Unknown]
  - Product dose omission in error [Unknown]
  - Drug ineffective [Unknown]

NARRATIVE: CASE EVENT DATE: 20250101
